FAERS Safety Report 5593209-5 (Version None)
Quarter: 2008Q1

REPORT INFORMATION
  Report Type: 
  Country: None (occurrence: None)
  Receive Date: 20080115
  Receipt Date: 20080115
  Transmission Date: 20080703
  Serious: Yes (Other)
  Sender: FDA-Public Use
  Company Number: None

PATIENT
  Age: 9 Year
  Sex: Male
  Weight: 68.0396 kg

DRUGS (2)
  1. ASMANEX TWISTHALER [Suspect]
     Indication: PROPHYLAXIS
     Dosage: 1 PUFF DAILY NASAL
     Route: 045
     Dates: start: 20070901, end: 20080104
  2. ASMANEX TWISTHALER [Suspect]
     Indication: RESPIRATORY DISORDER
     Dosage: 1 PUFF DAILY NASAL
     Route: 045
     Dates: start: 20070901, end: 20080104

REACTIONS (3)
  - ANGER [None]
  - DEPRESSION [None]
  - PARANOIA [None]
